FAERS Safety Report 7543740-8 (Version None)
Quarter: 2011Q2

REPORT INFORMATION
  Report Type: 
  Country: None (occurrence: None)
  Receive Date: 20110613
  Receipt Date: 20040820
  Transmission Date: 20111010
  Serious: Yes (Hospitalization)
  Sender: FDA-Public Use
  Company Number: PHHO2004JP11848

PATIENT
  Sex: Male
  Weight: 50 kg

DRUGS (6)
  1. CERNILTON [Concomitant]
     Indication: BENIGN PROSTATIC HYPERPLASIA
     Dates: start: 20030325
  2. PROTECADIN [Concomitant]
     Indication: GASTRITIS
     Dates: start: 20030729
  3. CEROCRAL [Concomitant]
     Dates: start: 20030324
  4. DIOVAN [Suspect]
     Indication: HYPERTENSION
     Dosage: 40 MG DAILY DOSE
     Route: 048
     Dates: start: 20030617, end: 20030818
  5. ARICEPT [Concomitant]
     Indication: DEMENTIA ALZHEIMER'S TYPE
     Dates: start: 20021112
  6. GLYBURIDE [Concomitant]
     Indication: DIABETES MELLITUS
     Dates: start: 20020108

REACTIONS (6)
  - ABASIA [None]
  - GRIP STRENGTH DECREASED [None]
  - PYREXIA [None]
  - DYSARTHRIA [None]
  - PNEUMONIA ASPIRATION [None]
  - CEREBRAL INFARCTION [None]
